FAERS Safety Report 20865199 (Version 1)
Quarter: 2022Q2

REPORT INFORMATION
  Report Type: Report from Study
  Country: CA (occurrence: CA)
  Receive Date: 20220524
  Receipt Date: 20220524
  Transmission Date: 20220720
  Serious: Yes (Other)
  Sender: FDA-Public Use
  Company Number: CA-ABBVIE-22K-028-4399675-00

PATIENT
  Sex: Female

DRUGS (1)
  1. HUMIRA [Suspect]
     Active Substance: ADALIMUMAB
     Indication: Psoriatic arthropathy
     Route: 058
     Dates: start: 20190212

REACTIONS (16)
  - Retinal detachment [Unknown]
  - Retinal tear [Unknown]
  - Incorrect dose administered [Unknown]
  - Mental fatigue [Unknown]
  - Vitreous floaters [Not Recovered/Not Resolved]
  - Fatigue [Not Recovered/Not Resolved]
  - Asthenia [Not Recovered/Not Resolved]
  - Dizziness [Not Recovered/Not Resolved]
  - Psoriatic arthropathy [Unknown]
  - Oral herpes [Not Recovered/Not Resolved]
  - Injection site pain [Unknown]
  - Peripheral swelling [Unknown]
  - Pain in extremity [Unknown]
  - Erythema [Unknown]
  - Unevaluable event [Unknown]
  - Psoriasis [Unknown]
